FAERS Safety Report 7333082-8 (Version None)
Quarter: 2011Q1

REPORT INFORMATION
  Report Type: 
  Country: None (occurrence: None)
  Receive Date: 20110222
  Receipt Date: 20110214
  Transmission Date: 20110831
  Serious: Yes (Death)
  Sender: FDA-Public Use
  Company Number: 2010SP053503

PATIENT
  Age: 74 Year
  Sex: Female
  Weight: 53 kg

DRUGS (24)
  1. BAKTAR [Concomitant]
  2. MAGLAX [Concomitant]
  3. BENZALIN [Concomitant]
  4. ZETIA [Concomitant]
  5. PRIMPERAN TAB [Concomitant]
  6. ADALAT CC [Concomitant]
  7. DEPAS [Concomitant]
  8. OLMETEC [Concomitant]
  9. LAXOBERON [Concomitant]
  10. LOXONIN [Concomitant]
  11. ALOSENN [Concomitant]
  12. TEMODAL [Suspect]
     Dosage: SEE IMAGE
     Route: 048
     Dates: start: 20090131, end: 20090204
  13. TEMODAL [Suspect]
     Dosage: SEE IMAGE
     Route: 048
     Dates: start: 20090228, end: 20090304
  14. TEMODAL [Suspect]
     Dosage: SEE IMAGE
     Route: 048
     Dates: start: 20090425, end: 20090429
  15. TEMODAL [Suspect]
     Dosage: SEE IMAGE
     Route: 048
     Dates: start: 20090912, end: 20090916
  16. TEMODAL [Suspect]
     Dosage: SEE IMAGE
     Route: 048
     Dates: start: 20091010, end: 20091014
  17. TEMODAL [Suspect]
     Dosage: SEE IMAGE
     Route: 048
     Dates: start: 20090620, end: 20090624
  18. TEMODAL [Suspect]
     Dosage: SEE IMAGE
     Route: 048
     Dates: start: 20090718, end: 20090722
  19. TEMODAL [Suspect]
     Dosage: SEE IMAGE
     Route: 048
     Dates: start: 20091022, end: 20091204
  20. TEMODAL [Suspect]
     Dosage: SEE IMAGE
     Route: 048
     Dates: start: 20090523, end: 20090527
  21. TEMODAL [Suspect]
     Dosage: SEE IMAGE
     Route: 048
     Dates: start: 20090103, end: 20090107
  22. TEMODAL [Suspect]
     Dosage: SEE IMAGE
     Route: 048
     Dates: start: 20090328, end: 20090401
  23. TEMODAL [Suspect]
     Dosage: SEE IMAGE
     Route: 048
     Dates: start: 20090815, end: 20090819
  24. GASTER D [Concomitant]

REACTIONS (4)
  - RADIATION NECROSIS [None]
  - NEOPLASM MALIGNANT [None]
  - ANAPLASTIC ASTROCYTOMA [None]
  - BRAIN CANCER METASTATIC [None]
